FAERS Safety Report 22093498 (Version 1)
Quarter: 2023Q1

REPORT INFORMATION
  Report Type: Spontaneous
  Country: MX (occurrence: MX)
  Receive Date: 20230314
  Receipt Date: 20230314
  Transmission Date: 20230418
  Serious: Yes (Hospitalization, Other)
  Sender: FDA-Public Use
  Company Number: MX-009507513-2302MEX006407

PATIENT
  Sex: Female
  Weight: 54 kg

DRUGS (1)
  1. KEYTRUDA [Suspect]
     Active Substance: PEMBROLIZUMAB
     Indication: Endometrial cancer
     Dosage: 200 MG, FREQUENCY: 1
     Route: 042
     Dates: start: 20230215, end: 20230215

REACTIONS (18)
  - Pulmonary embolism [Recovering/Resolving]
  - Nephropathy toxic [Recovering/Resolving]
  - Hepatotoxicity [Recovering/Resolving]
  - Pulmonary toxicity [Recovering/Resolving]
  - Thrombocytopenia [Recovering/Resolving]
  - Cytokine release syndrome [Recovered/Resolved]
  - Infusion related reaction [Recovered/Resolved]
  - Hypokalaemia [Recovering/Resolving]
  - Fibrin D dimer increased [Recovering/Resolving]
  - Anal incontinence [Recovering/Resolving]
  - Blood lactic acid increased [Recovering/Resolving]
  - Lung opacity [Recovering/Resolving]
  - Leukocytosis [Recovering/Resolving]
  - Neutrophilia [Recovering/Resolving]
  - Procalcitonin increased [Recovering/Resolving]
  - Metabolic acidosis [Recovering/Resolving]
  - Abdominal pain [Recovering/Resolving]
  - Anaemia [Recovering/Resolving]

NARRATIVE: CASE EVENT DATE: 20230201
